FAERS Safety Report 18282561 (Version 1)
Quarter: 2020Q3

REPORT INFORMATION
  Report Type: Spontaneous
  Country: US (occurrence: US)
  Receive Date: 20200918
  Receipt Date: 20200918
  Transmission Date: 20201103
  Serious: Yes (Hospitalization)
  Sender: FDA-Public Use
  Company Number: US-TEVA-2020-US-1828463

PATIENT
  Sex: Female

DRUGS (1)
  1. LABETALOL HYDROCHLORIDE. [Suspect]
     Active Substance: LABETALOL HYDROCHLORIDE
     Indication: HYPERTENSION
     Dosage: USING FOR FEW YEARS
     Route: 065

REACTIONS (2)
  - Blood pressure increased [Unknown]
  - Drug ineffective [Unknown]

NARRATIVE: CASE EVENT DATE: 2020
